FAERS Safety Report 17057559 (Version 1)
Quarter: 2019Q4

REPORT INFORMATION
  Report Type: Report from Study
  Country: US (occurrence: US)
  Receive Date: 20191121
  Receipt Date: 20191121
  Transmission Date: 20200122
  Serious: No
  Sender: FDA-Public Use
  Company Number: US-BEH-2019109671

PATIENT
  Age: 50 Year
  Sex: Female
  Weight: 59.86 kg

DRUGS (1)
  1. HIZENTRA [Suspect]
     Active Substance: HUMAN IMMUNOGLOBULIN G
     Indication: SELECTIVE IGG SUBCLASS DEFICIENCY
     Dosage: 8 GRAM, QW
     Route: 058
     Dates: start: 20191102

REACTIONS (6)
  - Headache [Recovering/Resolving]
  - Pain [Recovering/Resolving]
  - Paranasal sinus discomfort [Recovering/Resolving]
  - Pruritus [Recovering/Resolving]
  - Contusion [Recovering/Resolving]
  - Nasal congestion [Recovering/Resolving]

NARRATIVE: CASE EVENT DATE: 20191111
